FAERS Safety Report 16633629 (Version 1)
Quarter: 2019Q3

REPORT INFORMATION
  Report Type: Spontaneous
  Country: US (occurrence: US)
  Receive Date: 20190725
  Receipt Date: 20190725
  Transmission Date: 20191004
  Serious: No
  Sender: FDA-Public Use
  Company Number: US-BIOMARINAP-US-2019-124617

PATIENT
  Age: 9 Year
  Sex: Female
  Weight: 26.3 kg

DRUGS (2)
  1. ALTEPLASE. [Concomitant]
     Active Substance: ALTEPLASE
     Indication: CATHETER MANAGEMENT
     Dosage: 2 MILLIGRAM
     Dates: start: 20190703
  2. VIMIZIM [Suspect]
     Active Substance: ELOSULFASE ALFA
     Indication: MUCOPOLYSACCHARIDOSIS IV
     Dosage: 50 MILLIGRAM, QW
     Route: 042
     Dates: start: 2014

REACTIONS (5)
  - Pallor [Recovered/Resolved]
  - Vascular access complication [Unknown]
  - Vomiting [Recovered/Resolved]
  - Product dose omission [Unknown]
  - Fear of injection [Recovered/Resolved]

NARRATIVE: CASE EVENT DATE: 20190717
